FAERS Safety Report 5908394-2 (Version None)
Quarter: 2008Q3

REPORT INFORMATION
  Report Type: 
  Country: None (occurrence: None)
  Receive Date: 20080930
  Receipt Date: 20080916
  Transmission Date: 20090109
  Serious: Yes (Hospitalization)
  Sender: FDA-Public Use
  Company Number: WAES 0809USA03399

PATIENT

DRUGS (5)
  1. DECADRON [Suspect]
     Indication: MULTIPLE MYELOMA
     Dosage: 40 MG/DAILY/PO
     Route: 048
  2. ARSENIC TRIOXIDE [Suspect]
     Dosage: 0.15 MG/KG/2XW, 0.25 MG/KG/2XW/IV
     Route: 042
  3. DOXORUBICIN HCL [Suspect]
     Dosage: 40 MG/M[2]/DAILY/IV
     Route: 042
  4. VINCRISTINE SULFATE [Suspect]
     Dosage: 1.4 MG/M[2]
  5. [THERAPY UNSPECIFIED] [Concomitant]

REACTIONS (2)
  - PNEUMOCOCCAL BACTERAEMIA [None]
  - PNEUMONIA PNEUMOCOCCAL [None]
